FAERS Safety Report 9343080 (Version 2)
Quarter: 2013Q3

REPORT INFORMATION
  Report Type: Spontaneous
  Country: GB (occurrence: GB)
  Receive Date: 20130611
  Receipt Date: 20130718
  Transmission Date: 20140515
  Serious: Yes (Other)
  Sender: FDA-Public Use
  Company Number: GB-VERTEX PHARMACEUTICALS INC-2013-006975

PATIENT
  Sex: Male
  Weight: 90 kg

DRUGS (6)
  1. INCIVO [Suspect]
     Indication: HEPATITIS C
     Dosage: TABLET
     Route: 048
     Dates: start: 20130314, end: 20130528
  2. PEGASYS [Suspect]
     Indication: HEPATITIS C
     Dosage: DOSAGE FORM: INJECTION
     Route: 058
     Dates: start: 20130314
  3. PEGASYS [Suspect]
     Dosage: DOSAGE FORM: INJECTION
     Route: 058
     Dates: start: 20130605
  4. COPEGUS [Suspect]
     Indication: HEPATITIS C
     Dosage: DOSAGE FORM: TABLETS
     Route: 048
     Dates: start: 20130314
  5. COPEGUS [Suspect]
     Dosage: DOSAGE FORM: TABLETS
     Route: 048
     Dates: start: 20130605
  6. CITALOPRAM [Concomitant]
     Dosage: 10 MG, QD
     Dates: start: 20121009

REACTIONS (3)
  - Melanocytic naevus [Unknown]
  - Dermatitis psoriasiform [Unknown]
  - Drug eruption [Unknown]
